FAERS Safety Report 10579763 (Version 1)
Quarter: 2014Q4

REPORT INFORMATION
  Report Type: Spontaneous
  Country: US (occurrence: US)
  Receive Date: 20141112
  Receipt Date: 20141112
  Transmission Date: 20150529
  Serious: No
  Sender: FDA-Public Use
  Company Number: US-SHIRE-US201407303

PATIENT
  Age: 48 Year
  Sex: Male
  Weight: 77.98 kg

DRUGS (1)
  1. PENTASA [Suspect]
     Active Substance: MESALAMINE
     Indication: CROHN^S DISEASE
     Dosage: 4000 MG (500 MG, 8 CAPSULES), UNKNOWN (PER DAY)
     Route: 048
     Dates: start: 2014

REACTIONS (3)
  - Abdominal pain upper [Unknown]
  - Product use issue [Not Recovered/Not Resolved]
  - Faeces discoloured [Unknown]

NARRATIVE: CASE EVENT DATE: 2014
